FAERS Safety Report 6138651-9 (Version None)
Quarter: 2009Q1

REPORT INFORMATION
  Report Type: 
  Country: None (occurrence: None)
  Receive Date: 20090327
  Receipt Date: 20090313
  Transmission Date: 20090719
  Serious: Yes (Hospitalization)
  Sender: FDA-Public Use
  Company Number: DSM-2009-00269

PATIENT
  Age: 64 Year
  Sex: Male

DRUGS (6)
  1. OLMESARTAN MEDOXOMIL [Suspect]
     Indication: HYPERTENSION
     Dosage: 20 MG (20 MG, 1 IN 1 D) ORAL YEARS AGO
     Route: 048
  2. VOTUM PLUS 20/12.5 (HYDROCHLOROTHIAZIDE OLMESARTAN MEDOXOMIL) (TABLET) [Suspect]
     Indication: HYPERTENSION
     Dosage: 20 / 12.5 MG (1 IN 1 D) ORAL YEARS AGO
     Route: 048
     Dates: end: 20090113
  3. DOMPERIDONE (DOMPERIDONE) (10 MILLIGRAM, TABLET) (DOMPERIDONE) [Concomitant]
  4. ISCOVER (CLOPIDOGREL SULFATE) (75 MILLIGRAM, TABLET) (DOMPERIDONE) [Concomitant]
  5. METOPROLOL (METOPROLOL) (200 MILLIGRAM, TABLET) (METOPROLOL) [Concomitant]
  6. NEXIUM (ESMEPRAZOLE) (40 MILLIGRAM, TABLET) (ESOMEPRAZOLE) [Concomitant]

REACTIONS (3)
  - ATRIAL FIBRILLATION [None]
  - BRADYCARDIA [None]
  - TACHYARRHYTHMIA [None]
